FAERS Safety Report 4688598-X (Version None)
Quarter: 2005Q2

REPORT INFORMATION
  Report Type: 
  Country: None (occurrence: None)
  Receive Date: 20050608
  Receipt Date: 20050321
  Transmission Date: 20051028
  Serious: No
  Sender: FDA-Public Use
  Company Number: 2005-BP-04629BP

PATIENT
  Age: 50 Year
  Sex: Male

DRUGS (5)
  1. SPIRIVA [Suspect]
     Indication: CHRONIC OBSTRUCTIVE PULMONARY DISEASE
     Dosage: 18 MCG (18 MCG, QD), IH
     Route: 055
     Dates: start: 20050301, end: 20050321
  2. XOPENEX [Concomitant]
  3. FLOVENT [Concomitant]
  4. ZOLOFT [Concomitant]
  5. ALBUTEROL [Concomitant]

REACTIONS (2)
  - ASTHMA [None]
  - UPPER RESPIRATORY TRACT INFECTION [None]
